FAERS Safety Report 15013043 (Version 7)
Quarter: 2019Q2

REPORT INFORMATION
  Report Type: Report from Study
  Country: JP (occurrence: JP)
  Receive Date: 20180614
  Receipt Date: 20190606
  Transmission Date: 20190711
  Serious: Yes (Hospitalization, Other)
  Sender: FDA-Public Use
  Company Number: JP-MYLANLABS-2018M1039527

PATIENT
  Age: 3 Year
  Sex: Female
  Weight: 14.2 kg

DRUGS (35)
  1. NICYSTAGON CAP. 150MG [Suspect]
     Active Substance: CYSTEAMINE
     Indication: PRODUCT USED FOR UNKNOWN INDICATION
     Dosage: 150 MG, QID
     Route: 065
     Dates: start: 20170628
  2. BICARBONATE SODIUM [Concomitant]
     Active Substance: SODIUM BICARBONATE
     Dosage: 3 UNK
     Route: 048
     Dates: start: 20181120
  3. ASPARA K [Concomitant]
     Active Substance: POTASSIUM ASPARTATE
     Dosage: 2.6 G, UNK
     Route: 048
     Dates: start: 20171206, end: 20180116
  4. ASPARA K [Concomitant]
     Active Substance: POTASSIUM ASPARTATE
     Dosage: 8 UNK
     Route: 048
     Dates: start: 20190116, end: 20190507
  5. PHOSRIBBON [Concomitant]
     Dosage: 350 MG, UNK
     Route: 048
     Dates: start: 20161207, end: 20171205
  6. ASPARA K [Concomitant]
     Active Substance: POTASSIUM ASPARTATE
     Dosage: 4 G, UNK
     Route: 048
     Dates: start: 20180516, end: 20180612
  7. ASPARA K [Concomitant]
     Active Substance: POTASSIUM ASPARTATE
     Dosage: 8 UNK
     Route: 048
     Dates: start: 20190508
  8. BIO-THREE [Concomitant]
     Active Substance: HERBALS
     Indication: PRODUCT USED FOR UNKNOWN INDICATION
     Dosage: 0.5 G, UNK
     Route: 048
     Dates: start: 20180110, end: 20180117
  9. CARBOCYSTEINE [Concomitant]
     Active Substance: CARBOCYSTEINE
     Dosage: ??
     Dates: start: 20180307, end: 20180409
  10. POTASSIUM CITRATE W/SODIUM CITRATE [Concomitant]
     Active Substance: POTASSIUM CITRATE\SODIUM CITRATE
     Dosage: 4 GRAM
     Route: 048
     Dates: start: 20180711
  11. ASPARA K [Concomitant]
     Active Substance: POTASSIUM ASPARTATE
     Dosage: 6.4 GRAM
     Route: 048
     Dates: start: 20180815, end: 20180914
  12. ASPARA K [Concomitant]
     Active Substance: POTASSIUM ASPARTATE
     Dosage: 7.5 GRAM
     Route: 048
     Dates: start: 20181017, end: 20181120
  13. ASPARA K [Concomitant]
     Active Substance: POTASSIUM ASPARTATE
     Dosage: 8 UNK
     Route: 048
     Dates: start: 20181121, end: 20181218
  14. TULOBUTEROL [Concomitant]
     Active Substance: TULOBUTEROL
     Dosage: 0.7 UNK
     Route: 048
     Dates: start: 20180815, end: 20180822
  15. ASPARA K [Concomitant]
     Active Substance: POTASSIUM ASPARTATE
     Dosage: 3.2 G, UNK
     Route: 048
     Dates: start: 20180410, end: 20180515
  16. ASPARA K [Concomitant]
     Active Substance: POTASSIUM ASPARTATE
     Dosage: 7 GRAM
     Route: 048
     Dates: start: 20180915, end: 20181016
  17. L CARTIN [Concomitant]
     Active Substance: LEVOCARNITINE HYDROCHLORIDE
     Indication: PRODUCT USED FOR UNKNOWN INDICATION
     Dosage: 3 ML, UNK
     Route: 048
     Dates: start: 20160302
  18. CARBOCYSTEINE [Concomitant]
     Active Substance: CARBOCYSTEINE
     Dosage: 0.7 GRAM
     Route: 048
     Dates: start: 20180815, end: 20180822
  19. POTASSIUM CITRATE W/SODIUM CITRATE [Concomitant]
     Active Substance: POTASSIUM CITRATE\SODIUM CITRATE
     Indication: PRODUCT USED FOR UNKNOWN INDICATION
     Dosage: 3.5 GRAM
     Route: 048
     Dates: start: 20180207, end: 20180710
  20. URINMET [Concomitant]
     Active Substance: POTASSIUM CITRATE\SODIUM CITRATE
     Indication: PRODUCT USED FOR UNKNOWN INDICATION
     Dosage: 3.5 G, UNK
     Route: 048
     Dates: start: 20170412, end: 20180206
  21. PHOSRIBBON [Concomitant]
     Indication: PRODUCT USED FOR UNKNOWN INDICATION
     Dosage: 400 MG, UNK
     Route: 048
     Dates: start: 20161109, end: 20161206
  22. ASPARA K [Concomitant]
     Active Substance: POTASSIUM ASPARTATE
     Dosage: 2.8 G, UNK
     Route: 048
     Dates: start: 20170117, end: 20180306
  23. CARBOCYSTEINE [Concomitant]
     Active Substance: CARBOCYSTEINE
     Indication: PRODUCT USED FOR UNKNOWN INDICATION
     Dosage: 0.7 G, UNK
     Route: 048
     Dates: start: 20180307, end: 20180314
  24. TULOBUTEROL [Concomitant]
     Active Substance: TULOBUTEROL
     Indication: PRODUCT USED FOR UNKNOWN INDICATION
     Dosage: 0.5 G, UNK
     Route: 048
     Dates: start: 20180307, end: 20180314
  25. PHOSRIBBON [Concomitant]
     Dosage: 400 MG, UNK
     Route: 048
     Dates: start: 20171206
  26. ALFAROL [Concomitant]
     Active Substance: ALFACALCIDOL
     Indication: PRODUCT USED FOR UNKNOWN INDICATION
     Dosage: 0.8 ?G, UNK
     Route: 048
     Dates: start: 20160406
  27. ASPARA K [Concomitant]
     Active Substance: POTASSIUM ASPARTATE
     Indication: PRODUCT USED FOR UNKNOWN INDICATION
     Dosage: 2.4 G, UNK
     Route: 048
     Dates: start: 20171101, end: 20171205
  28. ASPARA K [Concomitant]
     Active Substance: POTASSIUM ASPARTATE
     Dosage: 3 G, UNK
     Route: 048
     Dates: start: 20180307, end: 20180409
  29. ASPARA K [Concomitant]
     Active Substance: POTASSIUM ASPARTATE
     Dosage: 6 UNK
     Route: 048
     Dates: start: 20180613, end: 20180814
  30. ASPARA K [Concomitant]
     Active Substance: POTASSIUM ASPARTATE
     Dosage: 8 UNK
     Route: 048
     Dates: start: 20181219, end: 20190115
  31. NESP [Concomitant]
     Active Substance: DARBEPOETIN ALFA
     Indication: PRODUCT USED FOR UNKNOWN INDICATION
     Dosage: 5 ?G, UNK
     Route: 042
     Dates: start: 20170607, end: 20170927
  32. GENOTROPIN [Concomitant]
     Active Substance: SOMATROPIN
     Indication: PRODUCT USED FOR UNKNOWN INDICATION
     Dosage: 0.4 MILLIGRAM, SIX TIMES A WEEK
     Route: 058
     Dates: start: 20190320
  33. BICARBONATE SODIUM [Concomitant]
     Active Substance: SODIUM BICARBONATE
     Indication: PRODUCT USED FOR UNKNOWN INDICATION
     Dosage: 3.5 G, UNK
     Route: 048
     Dates: start: 20160511, end: 20181120
  34. BIO-THREE [Concomitant]
     Active Substance: HERBALS
     Dosage: 0.5 G, UNK
     Route: 048
     Dates: start: 20190409, end: 20190416
  35. SODIUM CHLORIDE. [Concomitant]
     Active Substance: SODIUM CHLORIDE
     Indication: PRODUCT USED FOR UNKNOWN INDICATION
     Dosage: 3 GRAM
     Route: 048
     Dates: start: 20181121

REACTIONS (4)
  - Hypokalaemia [Recovered/Resolved]
  - Enteritis infectious [Recovered/Resolved]
  - Gastroenteritis rotavirus [Recovered/Resolved]
  - Gastroenteritis [Recovered/Resolved]

NARRATIVE: CASE EVENT DATE: 20180108
